FAERS Safety Report 17898914 (Version 2)
Quarter: 2020Q3

REPORT INFORMATION
  Report Type: Report from Study
  Country: PL (occurrence: PL)
  Receive Date: 20200615
  Receipt Date: 20200701
  Transmission Date: 20201103
  Serious: Yes (Life-Threatening, Hospitalization, Other)
  Sender: FDA-Public Use
  Company Number: PL-GLAXOSMITHKLINE-PL2020100088

PATIENT
  Age: 80 Year
  Sex: Male

DRUGS (26)
  1. NEBIVOLOL. [Concomitant]
     Active Substance: NEBIVOLOL
     Indication: HYPERTENSION
     Dosage: 2.5 MG, QD
     Route: 048
  2. LEVOXA [Concomitant]
     Active Substance: LEVOFLOXACIN
     Indication: BRONCHITIS
     Dosage: 500 MG, BID
     Route: 048
  3. BUDESONIDE. [Concomitant]
     Active Substance: BUDESONIDE
     Indication: BRONCHITIS
     Dosage: 1 OTHER
     Route: 048
  4. CORHYDRON [Concomitant]
     Indication: BRONCHITIS
     Dosage: 100 MG
     Route: 042
  5. METOCLOPRAMIDE. [Concomitant]
     Active Substance: METOCLOPRAMIDE
     Indication: BRONCHITIS
     Dosage: 2 ML
     Route: 042
  6. PARACETAMOL [Concomitant]
     Active Substance: ACETAMINOPHEN
     Indication: ARTHRALGIA
     Dosage: AS NECESSARY
     Route: 048
  7. RAMIPRIL. [Concomitant]
     Active Substance: RAMIPRIL
     Indication: HYPERTENSION
     Dosage: 10 MG, QD
     Route: 048
  8. GLUCOSE [Concomitant]
     Active Substance: DEXTROSE
     Indication: BRONCHITIS
     Dosage: UNK
     Route: 065
  9. LAPIXEN [Concomitant]
     Indication: HYPERTENSION
     Dosage: 4 MG, QD
     Route: 048
  10. DIPHERELINE [Concomitant]
     Active Substance: TRIPTORELIN ACETATE
     Dosage: 11.25 MG Q3M
     Route: 058
  11. PREDNISONE. [Concomitant]
     Active Substance: PREDNISONE
     Indication: PROSTATE CANCER METASTATIC
     Dosage: 10 MG, QD
     Route: 048
     Dates: start: 20190926, end: 20200603
  12. ATROVENT [Concomitant]
     Active Substance: IPRATROPIUM BROMIDE
     Indication: BRONCHITIS
     Dosage: 1 OTHER
     Route: 048
  13. ROSUVASTATIN. [Concomitant]
     Active Substance: ROSUVASTATIN
     Indication: BLOOD CHOLESTEROL DECREASED
     Dosage: 20 MG, QD
     Route: 048
  14. KALIUM CHLORATUM [Concomitant]
     Active Substance: POTASSIUM CHLORIDE
     Indication: BRONCHITIS
     Dosage: 10 ML
     Route: 042
  15. ACETYLSALICYLIC ACID [Concomitant]
     Active Substance: ASPIRIN
     Indication: HYPERTENSION
     Dosage: 75 MG, QD
     Route: 048
  16. INDAPEN [Concomitant]
     Active Substance: INDAPAMIDE
     Indication: HYPERTENSION
     Dosage: 1.5 MG, QD
     Route: 048
  17. PLACEBO [Suspect]
     Active Substance: UNSPECIFIED INGREDIENT
     Indication: PROSTATE CANCER METASTATIC
     Dosage: 200 MG, QD
     Route: 048
     Dates: start: 20190926, end: 20200603
  18. CYCLO 3 FORT [Concomitant]
     Active Substance: ASCORBIC ACID\HESPERIDIN METHYLCHALCONE\RUSCUS ACULEATUS ROOT
     Indication: VARICOSE VEIN
     Dosage: 400 MG, BID
     Route: 048
  19. PANTOPRAZOLE [Concomitant]
     Active Substance: PANTOPRAZOLE
     Indication: GASTROINTESTINAL DISORDER THERAPY
     Dosage: 20 MG, QD
     Route: 048
  20. ABIRATERONE ACETATE. [Concomitant]
     Active Substance: ABIRATERONE ACETATE
     Indication: PROSTATE CANCER METASTATIC
     Dosage: 1000 MG, QD
     Route: 048
     Dates: start: 20190926, end: 20200603
  21. ENOXAPARIN [Concomitant]
     Active Substance: ENOXAPARIN
     Indication: BRONCHITIS
     Dosage: 1 OTHER
     Route: 042
  22. KALDYUM [Concomitant]
     Active Substance: POTASSIUM CHLORIDE
     Indication: BRONCHITIS
     Dosage: 1 OTHER
     Route: 042
  23. SODIUM CHLORIDE. [Concomitant]
     Active Substance: SODIUM CHLORIDE
     Indication: BRONCHITIS
     Dosage: 9 ML
     Route: 042
  24. SPIRONOL [Concomitant]
     Active Substance: SPIRONOLACTONE
     Indication: BRONCHITIS
     Dosage: 1 OTHER
     Route: 048
  25. AMLODIPINE [Concomitant]
     Active Substance: AMLODIPINE BESYLATE
     Indication: HYPERTENSION
     Dosage: 5 MG, QD
     Route: 048
  26. MAGNESIUM [Concomitant]
     Active Substance: MAGNESIUM
     Indication: BRONCHITIS
     Dosage: 1 OTHER
     Route: 042

REACTIONS (1)
  - Haemorrhage intracranial [Not Recovered/Not Resolved]

NARRATIVE: CASE EVENT DATE: 20200608
